FAERS Safety Report 5002700-1 (Version None)
Quarter: 2006Q2

REPORT INFORMATION
  Report Type: 
  Country: None (occurrence: None)
  Receive Date: 20060510
  Receipt Date: 20060428
  Transmission Date: 20061013
  Serious: Yes (Disabling)
  Sender: FDA-Public Use
  Company Number: 2006058527

PATIENT
  Age: 9 Year
  Sex: Female

DRUGS (1)
  1. GENOTROPIN [Suspect]
     Indication: ILL-DEFINED DISORDER
     Dosage: SUBCUTANEOUS
     Route: 058
     Dates: start: 20051101

REACTIONS (1)
  - OSTEOCHONDROSIS [None]
